FAERS Safety Report 5901654-0 (Version None)
Quarter: 2008Q3

REPORT INFORMATION
  Report Type: 
  Country: None (occurrence: None)
  Receive Date: 20080929
  Receipt Date: 20080919
  Transmission Date: 20090109
  Serious: Yes (Hospitalization, Disabling)
  Sender: FDA-Public Use
  Company Number: US-MERCK-0710USA03058

PATIENT
  Age: 68 Year
  Sex: Female
  Weight: 64 kg

DRUGS (6)
  1. FOSAMAX [Suspect]
     Indication: OSTEOPENIA
     Route: 048
     Dates: start: 20010501, end: 20070301
  2. FOSAMAX [Suspect]
     Route: 048
     Dates: end: 20060101
  3. FOSAMAX [Suspect]
     Indication: OSTEOPOROSIS
     Route: 048
     Dates: start: 20010501, end: 20070301
  4. FOSAMAX [Suspect]
     Route: 048
     Dates: end: 20060101
  5. PREMARIN [Concomitant]
     Indication: HORMONE REPLACEMENT THERAPY
     Route: 065
     Dates: start: 19950915
  6. MEDROXYPROGESTERONE ACETATE [Concomitant]
     Route: 065
     Dates: start: 20000124

REACTIONS (15)
  - ANXIETY [None]
  - BLOOD CHOLESTEROL INCREASED [None]
  - CHEST PAIN [None]
  - DEPRESSION [None]
  - DIVERTICULUM [None]
  - EPICONDYLITIS [None]
  - FEAR [None]
  - HAEMORRHAGE [None]
  - HYPOTHYROIDISM [None]
  - IMPAIRED HEALING [None]
  - INFECTION [None]
  - INSOMNIA [None]
  - OSTEOMYELITIS [None]
  - OSTEONECROSIS [None]
  - STRESS [None]
